FAERS Safety Report 6687502-2 (Version None)
Quarter: 2010Q2

REPORT INFORMATION
  Report Type: 
  Country: None (occurrence: None)
  Receive Date: 20100419
  Receipt Date: 20090529
  Transmission Date: 20101027
  Serious: No
  Sender: FDA-Public Use
  Company Number: US-ABBOTT-09P-163-0577372-00

PATIENT
  Sex: Female

DRUGS (2)
  1. LUPRON DEPOT-PED [Suspect]
     Indication: PRECOCIOUS PUBERTY
     Route: 050
     Dates: start: 20080301, end: 20090525
  2. LUPRON DEPOT-PED [Suspect]
     Route: 050
     Dates: start: 20090525, end: 20090527

REACTIONS (3)
  - DISORIENTATION [None]
  - INJECTION SITE NODULE [None]
  - LOSS OF CONSCIOUSNESS [None]
